FAERS Safety Report 8794274 (Version 1)
Quarter: 2012Q4

REPORT INFORMATION
  Report Type: Report from Study
  Country: US (occurrence: US)
  Receive Date: 20120918
  Receipt Date: 20120918
  Transmission Date: 20130627
  Serious: Yes (Hospitalization)
  Sender: FDA-Public Use
  Company Number: US-009507513-0910USA02520

PATIENT

DRUGS (28)
  1. VORINOSTAT [Suspect]
     Indication: MULTIPLE MYELOMA
     Dosage: 400 mg, qd
     Route: 048
     Dates: start: 20090728, end: 20090803
  2. VORINOSTAT [Suspect]
     Dosage: 400 mg, qd
     Route: 048
     Dates: start: 20090811, end: 20090817
  3. VORINOSTAT [Suspect]
     Dosage: 400 mg, qd
     Route: 048
     Dates: start: 20090825, end: 20090831
  4. VORINOSTAT [Suspect]
     Dosage: 400 mg, qd
     Route: 048
     Dates: start: 20090908, end: 20090914
  5. VORINOSTAT [Suspect]
     Dosage: 300 mg, qd
     Route: 048
     Dates: start: 20090922, end: 20090928
  6. VORINOSTAT [Suspect]
     Dosage: 300 mg, qd
     Route: 048
     Dates: start: 20091026, end: 20100105
  7. VORINOSTAT [Suspect]
     Dosage: 300 mg, qd
     Route: 048
     Dates: start: 20100126
  8. DEXAMETHASONE [Suspect]
     Indication: MULTIPLE MYELOMA
     Dosage: 40 mg, QW
     Route: 048
     Dates: start: 20090728, end: 20091006
  9. DEXAMETHASONE [Suspect]
     Dosage: 20 mg, QW
     Route: 048
     Dates: start: 20091103
  10. LENALIDOMIDE [Suspect]
     Indication: MULTIPLE MYELOMA
     Dosage: 25 mg, qd
     Route: 048
     Dates: start: 20090728, end: 20090922
  11. LENALIDOMIDE [Suspect]
     Dosage: 25 mg, qd
     Route: 048
     Dates: start: 20090922, end: 20091012
  12. LENALIDOMIDE [Suspect]
     Dosage: 15 mg, qd
     Route: 048
     Dates: start: 20091211, end: 20100215
  13. LENALIDOMIDE [Suspect]
     Dosage: 15 mg, qd
     Route: 048
     Dates: start: 20100224
  14. ACYCLOVIR [Concomitant]
     Indication: ANALGESIC THERAPY
     Dosage: 100 mg, bid
     Route: 048
     Dates: start: 20090721
  15. THIOCTIC ACID [Concomitant]
     Indication: NEUROPATHY PERIPHERAL
     Dosage: 400 mg, qd
     Route: 048
     Dates: start: 20070425, end: 20100126
  16. ASPIRIN [Concomitant]
     Indication: ANTICOAGULANT THERAPY
     Dosage: 325 mg, qd
     Route: 048
     Dates: start: 20071105, end: 20091017
  17. CENTRUM SILVER [Concomitant]
     Indication: ROUTINE HEALTH MAINTENANCE
     Dosage: 1 DF, qd
     Route: 048
     Dates: start: 20070425
  18. COLACE [Concomitant]
     Indication: CONSTIPATION
     Dosage: 100 mg, UNK
     Route: 048
     Dates: start: 20071212
  19. OMEGA-3 MARINE TRIGLYCERIDES [Concomitant]
     Indication: NEUROPATHY PERIPHERAL
     Dosage: 1000 mg, qd
     Route: 048
     Dates: start: 20070425
  20. MYLANTA GAS TABLETS [Concomitant]
     Indication: FLATULENCE
     Dosage: 2 UNK, PRN
     Route: 048
     Dates: start: 20071212, end: 20120905
  21. PROCRIT [Concomitant]
     Indication: ANAEMIA
     Dosage: 40000 U, QW
     Route: 058
     Dates: start: 20071212, end: 20100126
  22. SENOKOT (SENNA) [Concomitant]
     Indication: CONSTIPATION
     Dosage: 1 DF, UNK
     Route: 048
     Dates: start: 20080823, end: 20120216
  23. ZOLOFT [Concomitant]
     Indication: DEPRESSION
     Dosage: 100 mg, qd
     Route: 048
     Dates: start: 20071211
  24. VITAMIN B COMPLEX [Concomitant]
     Indication: ROUTINE HEALTH MAINTENANCE
     Dosage: 1 DF, qd
     Route: 048
     Dates: start: 20090729
  25. Z-PAK [Concomitant]
     Indication: UPPER RESPIRATORY TRACT INFECTION
     Dates: start: 200108, end: 201108
  26. ALBUTEROL [Concomitant]
     Indication: UPPER RESPIRATORY TRACT INFECTION
     Dates: start: 20091018, end: 20091020
  27. OXYGEN [Concomitant]
     Indication: UPPER RESPIRATORY TRACT INFECTION
     Dates: start: 20091018, end: 20091020
  28. ZOMETA [Concomitant]
     Indication: MULTIPLE MYELOMA
     Dosage: 4 mg, QM
     Route: 042
     Dates: start: 20070601

REACTIONS (2)
  - Deep vein thrombosis [Recovered/Resolved]
  - Pulmonary embolism [Recovered/Resolved]
